FAERS Safety Report 9381426 (Version 4)
Quarter: 2013Q3

REPORT INFORMATION
  Report Type: Spontaneous
  Country: IT (occurrence: IT)
  Receive Date: 20130703
  Receipt Date: 20130731
  Transmission Date: 20140515
  Serious: Yes (Other)
  Sender: FDA-Public Use
  Company Number: PHHY2013IT068024

PATIENT
  Sex: Female

DRUGS (4)
  1. ACLASTA [Suspect]
     Indication: OSTEOPOROSIS
     Dosage: 5 MG, UNK
     Route: 042
     Dates: start: 20120601
  2. OPTINATE [Suspect]
     Indication: OSTEOPOROSIS
     Dosage: 35 MG, PER WEEK
     Route: 048
     Dates: start: 2005, end: 200506
  3. ALENDRONATE [Suspect]
     Indication: OSTEOPOROSIS
     Dosage: 70 MG, WEEKLY
     Dates: start: 2005, end: 2005
  4. DIBASE [Concomitant]
     Indication: VITAMIN D DEFICIENCY
     Dosage: 30 DRP, UNK
     Route: 048
     Dates: start: 20120601, end: 20121201

REACTIONS (3)
  - Osteonecrosis of jaw [Unknown]
  - Swelling [Unknown]
  - Exposed bone in jaw [Unknown]
